FAERS Safety Report 15708048 (Version 1)
Quarter: 2018Q4

REPORT INFORMATION
  Report Type: Spontaneous
  Country: US (occurrence: US)
  Receive Date: 20181211
  Receipt Date: 20181211
  Transmission Date: 20190205
  Serious: No
  Sender: FDA-Public Use
  Company Number: US-JNJFOC-20181125073

PATIENT
  Sex: Female
  Weight: 56.7 kg

DRUGS (2)
  1. WOMENS ROGAINE UNSCENTED [Suspect]
     Active Substance: MINOXIDIL
     Indication: ALOPECIA
     Dosage: CAP-FULL
     Route: 061
     Dates: start: 201809, end: 20181116
  2. WOMENS ROGAINE UNSCENTED [Suspect]
     Active Substance: MINOXIDIL
     Route: 061

REACTIONS (4)
  - Inappropriate schedule of product administration [Unknown]
  - Product container issue [Unknown]
  - Off label use [Unknown]
  - Overdose [Unknown]
